FAERS Safety Report 23834824 (Version 9)
Quarter: 2025Q1

REPORT INFORMATION
  Report Type: Other
  Country: GB (occurrence: GB)
  Receive Date: 20240509
  Receipt Date: 20250228
  Transmission Date: 20250409
  Serious: Yes (Hospitalization, Other)
  Sender: BIOCON
  Company Number: GB-SANDOZ-NVSC2023GB148009

PATIENT

DRUGS (490)
  1. ADALIMUMAB [Suspect]
     Active Substance: ADALIMUMAB
     Indication: Product used for unknown indication
     Route: 065
  2. ADALIMUMAB [Suspect]
     Active Substance: ADALIMUMAB
     Indication: Colitis
     Route: 065
  3. ADALIMUMAB [Suspect]
     Active Substance: ADALIMUMAB
     Route: 065
  4. ADALIMUMAB [Suspect]
     Active Substance: ADALIMUMAB
     Route: 065
  5. ADALIMUMAB [Suspect]
     Active Substance: ADALIMUMAB
     Route: 065
  6. ADALIMUMAB [Suspect]
     Active Substance: ADALIMUMAB
     Route: 065
  7. ADALIMUMAB [Suspect]
     Active Substance: ADALIMUMAB
     Route: 065
  8. ADALIMUMAB [Suspect]
     Active Substance: ADALIMUMAB
     Route: 065
  9. ADALIMUMAB [Suspect]
     Active Substance: ADALIMUMAB
     Route: 065
  10. ADALIMUMAB [Suspect]
     Active Substance: ADALIMUMAB
     Route: 065
  11. ADALIMUMAB [Suspect]
     Active Substance: ADALIMUMAB
     Route: 065
  12. ADALIMUMAB [Suspect]
     Active Substance: ADALIMUMAB
     Route: 065
  13. ADALIMUMAB [Suspect]
     Active Substance: ADALIMUMAB
     Route: 065
  14. ADALIMUMAB [Suspect]
     Active Substance: ADALIMUMAB
     Route: 065
  15. ADALIMUMAB [Suspect]
     Active Substance: ADALIMUMAB
     Route: 065
  16. ADALIMUMAB [Suspect]
     Active Substance: ADALIMUMAB
     Route: 065
  17. ADALIMUMAB [Suspect]
     Active Substance: ADALIMUMAB
     Route: 065
  18. ADALIMUMAB [Suspect]
     Active Substance: ADALIMUMAB
     Route: 065
  19. ADALIMUMAB [Suspect]
     Active Substance: ADALIMUMAB
     Route: 065
  20. ADALIMUMAB [Suspect]
     Active Substance: ADALIMUMAB
     Route: 065
  21. ADALIMUMAB [Suspect]
     Active Substance: ADALIMUMAB
     Route: 065
  22. ADALIMUMAB [Suspect]
     Active Substance: ADALIMUMAB
     Route: 065
  23. ADALIMUMAB [Suspect]
     Active Substance: ADALIMUMAB
     Route: 065
  24. ADALIMUMAB [Suspect]
     Active Substance: ADALIMUMAB
     Route: 065
  25. ADALIMUMAB [Suspect]
     Active Substance: ADALIMUMAB
     Route: 065
  26. ADALIMUMAB [Suspect]
     Active Substance: ADALIMUMAB
     Route: 065
  27. ADALIMUMAB [Suspect]
     Active Substance: ADALIMUMAB
     Route: 065
  28. ADALIMUMAB [Suspect]
     Active Substance: ADALIMUMAB
     Route: 065
  29. ADALIMUMAB [Suspect]
     Active Substance: ADALIMUMAB
     Route: 065
  30. ADALIMUMAB [Suspect]
     Active Substance: ADALIMUMAB
     Route: 065
  31. ADALIMUMAB [Suspect]
     Active Substance: ADALIMUMAB
     Route: 065
  32. ADALIMUMAB [Suspect]
     Active Substance: ADALIMUMAB
     Route: 065
  33. ADALIMUMAB [Suspect]
     Active Substance: ADALIMUMAB
     Route: 065
  34. ADALIMUMAB [Suspect]
     Active Substance: ADALIMUMAB
     Route: 065
  35. ADALIMUMAB [Suspect]
     Active Substance: ADALIMUMAB
     Route: 065
  36. ADALIMUMAB [Suspect]
     Active Substance: ADALIMUMAB
     Route: 065
  37. ADALIMUMAB [Suspect]
     Active Substance: ADALIMUMAB
     Route: 065
  38. ADALIMUMAB [Suspect]
     Active Substance: ADALIMUMAB
     Route: 065
  39. ADALIMUMAB [Suspect]
     Active Substance: ADALIMUMAB
     Route: 065
  40. ADALIMUMAB [Suspect]
     Active Substance: ADALIMUMAB
     Route: 065
  41. ADALIMUMAB [Suspect]
     Active Substance: ADALIMUMAB
     Route: 065
  42. ADALIMUMAB [Suspect]
     Active Substance: ADALIMUMAB
     Route: 065
  43. ADALIMUMAB [Suspect]
     Active Substance: ADALIMUMAB
     Route: 065
  44. ADALIMUMAB [Suspect]
     Active Substance: ADALIMUMAB
     Route: 065
  45. ADALIMUMAB [Suspect]
     Active Substance: ADALIMUMAB
     Route: 065
  46. ADALIMUMAB [Suspect]
     Active Substance: ADALIMUMAB
     Route: 065
  47. ADALIMUMAB [Suspect]
     Active Substance: ADALIMUMAB
     Route: 065
  48. ADALIMUMAB [Suspect]
     Active Substance: ADALIMUMAB
     Route: 065
  49. ADALIMUMAB [Suspect]
     Active Substance: ADALIMUMAB
     Route: 065
  50. ADALIMUMAB [Suspect]
     Active Substance: ADALIMUMAB
     Route: 065
  51. METHOTREXATE SODIUM [Suspect]
     Active Substance: METHOTREXATE SODIUM
     Indication: Colitis
     Route: 065
  52. METHOTREXATE SODIUM [Suspect]
     Active Substance: METHOTREXATE SODIUM
     Indication: Colitis
     Route: 065
  53. METHOTREXATE SODIUM [Suspect]
     Active Substance: METHOTREXATE SODIUM
     Route: 065
  54. METHOTREXATE SODIUM [Suspect]
     Active Substance: METHOTREXATE SODIUM
     Route: 065
  55. METHOTREXATE SODIUM [Suspect]
     Active Substance: METHOTREXATE SODIUM
     Route: 065
  56. METHOTREXATE SODIUM [Suspect]
     Active Substance: METHOTREXATE SODIUM
     Route: 065
  57. METHOTREXATE SODIUM [Suspect]
     Active Substance: METHOTREXATE SODIUM
     Route: 065
  58. METHOTREXATE SODIUM [Suspect]
     Active Substance: METHOTREXATE SODIUM
     Route: 065
  59. METHOTREXATE SODIUM [Suspect]
     Active Substance: METHOTREXATE SODIUM
     Route: 065
  60. METHOTREXATE SODIUM [Suspect]
     Active Substance: METHOTREXATE SODIUM
     Route: 065
  61. METHOTREXATE SODIUM [Suspect]
     Active Substance: METHOTREXATE SODIUM
     Route: 065
  62. METHOTREXATE SODIUM [Suspect]
     Active Substance: METHOTREXATE SODIUM
     Route: 065
  63. METHOTREXATE SODIUM [Suspect]
     Active Substance: METHOTREXATE SODIUM
     Route: 065
  64. METHOTREXATE SODIUM [Suspect]
     Active Substance: METHOTREXATE SODIUM
     Route: 065
  65. METHOTREXATE SODIUM [Suspect]
     Active Substance: METHOTREXATE SODIUM
     Route: 065
  66. METHOTREXATE SODIUM [Suspect]
     Active Substance: METHOTREXATE SODIUM
     Route: 065
  67. METHOTREXATE SODIUM [Suspect]
     Active Substance: METHOTREXATE SODIUM
     Route: 065
  68. METHOTREXATE SODIUM [Suspect]
     Active Substance: METHOTREXATE SODIUM
     Route: 065
  69. METHOTREXATE SODIUM [Suspect]
     Active Substance: METHOTREXATE SODIUM
     Route: 065
  70. METHOTREXATE SODIUM [Suspect]
     Active Substance: METHOTREXATE SODIUM
     Route: 065
  71. METHOTREXATE SODIUM [Suspect]
     Active Substance: METHOTREXATE SODIUM
     Route: 065
  72. METHOTREXATE SODIUM [Suspect]
     Active Substance: METHOTREXATE SODIUM
     Route: 065
  73. METHOTREXATE SODIUM [Suspect]
     Active Substance: METHOTREXATE SODIUM
     Route: 065
  74. METHOTREXATE SODIUM [Suspect]
     Active Substance: METHOTREXATE SODIUM
     Route: 065
  75. METHOTREXATE SODIUM [Suspect]
     Active Substance: METHOTREXATE SODIUM
     Route: 065
  76. METHOTREXATE SODIUM [Suspect]
     Active Substance: METHOTREXATE SODIUM
     Route: 065
  77. METHOTREXATE SODIUM [Suspect]
     Active Substance: METHOTREXATE SODIUM
     Route: 065
  78. METHOTREXATE SODIUM [Suspect]
     Active Substance: METHOTREXATE SODIUM
     Route: 065
  79. METHOTREXATE SODIUM [Suspect]
     Active Substance: METHOTREXATE SODIUM
     Route: 065
  80. METHOTREXATE SODIUM [Suspect]
     Active Substance: METHOTREXATE SODIUM
     Route: 065
  81. METHOTREXATE SODIUM [Suspect]
     Active Substance: METHOTREXATE SODIUM
     Route: 065
  82. METHOTREXATE SODIUM [Suspect]
     Active Substance: METHOTREXATE SODIUM
     Route: 065
  83. METHOTREXATE SODIUM [Suspect]
     Active Substance: METHOTREXATE SODIUM
     Route: 065
  84. METHOTREXATE SODIUM [Suspect]
     Active Substance: METHOTREXATE SODIUM
     Route: 065
  85. METHOTREXATE SODIUM [Suspect]
     Active Substance: METHOTREXATE SODIUM
     Route: 065
  86. METHOTREXATE SODIUM [Suspect]
     Active Substance: METHOTREXATE SODIUM
     Route: 065
  87. METHOTREXATE SODIUM [Suspect]
     Active Substance: METHOTREXATE SODIUM
     Route: 065
  88. METHOTREXATE SODIUM [Suspect]
     Active Substance: METHOTREXATE SODIUM
     Route: 065
  89. METHOTREXATE SODIUM [Suspect]
     Active Substance: METHOTREXATE SODIUM
     Route: 065
  90. METHOTREXATE SODIUM [Suspect]
     Active Substance: METHOTREXATE SODIUM
     Route: 065
  91. METHOTREXATE SODIUM [Suspect]
     Active Substance: METHOTREXATE SODIUM
     Route: 065
  92. METHOTREXATE SODIUM [Suspect]
     Active Substance: METHOTREXATE SODIUM
     Route: 065
  93. METHOTREXATE SODIUM [Suspect]
     Active Substance: METHOTREXATE SODIUM
     Route: 065
  94. METHOTREXATE SODIUM [Suspect]
     Active Substance: METHOTREXATE SODIUM
     Route: 065
  95. METHOTREXATE SODIUM [Suspect]
     Active Substance: METHOTREXATE SODIUM
     Route: 065
  96. METHOTREXATE SODIUM [Suspect]
     Active Substance: METHOTREXATE SODIUM
     Route: 065
  97. METHOTREXATE SODIUM [Suspect]
     Active Substance: METHOTREXATE SODIUM
     Route: 065
  98. METHOTREXATE SODIUM [Suspect]
     Active Substance: METHOTREXATE SODIUM
     Route: 065
  99. METHOTREXATE SODIUM [Suspect]
     Active Substance: METHOTREXATE SODIUM
     Route: 065
  100. METHOTREXATE SODIUM [Suspect]
     Active Substance: METHOTREXATE SODIUM
     Route: 065
  101. INFLIXIMAB [Suspect]
     Active Substance: INFLIXIMAB
     Indication: Colitis
     Route: 065
  102. INFLIXIMAB [Suspect]
     Active Substance: INFLIXIMAB
     Indication: Colitis
     Route: 065
  103. INFLIXIMAB [Suspect]
     Active Substance: INFLIXIMAB
     Route: 065
  104. INFLIXIMAB [Suspect]
     Active Substance: INFLIXIMAB
     Route: 065
  105. INFLIXIMAB [Suspect]
     Active Substance: INFLIXIMAB
     Route: 042
  106. INFLIXIMAB [Suspect]
     Active Substance: INFLIXIMAB
     Route: 065
  107. INFLIXIMAB [Suspect]
     Active Substance: INFLIXIMAB
     Route: 065
  108. INFLIXIMAB [Suspect]
     Active Substance: INFLIXIMAB
     Route: 065
  109. INFLIXIMAB [Suspect]
     Active Substance: INFLIXIMAB
     Route: 065
  110. INFLIXIMAB [Suspect]
     Active Substance: INFLIXIMAB
     Route: 065
  111. INFLIXIMAB [Suspect]
     Active Substance: INFLIXIMAB
     Route: 065
  112. INFLIXIMAB [Suspect]
     Active Substance: INFLIXIMAB
     Route: 065
  113. INFLIXIMAB [Suspect]
     Active Substance: INFLIXIMAB
     Route: 065
  114. INFLIXIMAB [Suspect]
     Active Substance: INFLIXIMAB
     Route: 065
  115. INFLIXIMAB [Suspect]
     Active Substance: INFLIXIMAB
     Route: 065
  116. INFLIXIMAB [Suspect]
     Active Substance: INFLIXIMAB
     Route: 065
  117. INFLIXIMAB [Suspect]
     Active Substance: INFLIXIMAB
     Route: 065
  118. INFLIXIMAB [Suspect]
     Active Substance: INFLIXIMAB
     Route: 065
  119. INFLIXIMAB [Suspect]
     Active Substance: INFLIXIMAB
     Route: 065
  120. INFLIXIMAB [Suspect]
     Active Substance: INFLIXIMAB
     Route: 065
  121. INFLIXIMAB [Suspect]
     Active Substance: INFLIXIMAB
     Route: 065
  122. INFLIXIMAB [Suspect]
     Active Substance: INFLIXIMAB
     Route: 065
  123. INFLIXIMAB [Suspect]
     Active Substance: INFLIXIMAB
     Route: 065
  124. INFLIXIMAB [Suspect]
     Active Substance: INFLIXIMAB
     Route: 065
  125. INFLIXIMAB [Suspect]
     Active Substance: INFLIXIMAB
     Route: 065
  126. INFLIXIMAB [Suspect]
     Active Substance: INFLIXIMAB
     Route: 065
  127. INFLIXIMAB [Suspect]
     Active Substance: INFLIXIMAB
     Route: 065
  128. INFLIXIMAB [Suspect]
     Active Substance: INFLIXIMAB
     Route: 065
  129. INFLIXIMAB [Suspect]
     Active Substance: INFLIXIMAB
     Route: 065
  130. INFLIXIMAB [Suspect]
     Active Substance: INFLIXIMAB
     Route: 065
  131. INFLIXIMAB [Suspect]
     Active Substance: INFLIXIMAB
     Route: 065
  132. INFLIXIMAB [Suspect]
     Active Substance: INFLIXIMAB
     Route: 065
  133. INFLIXIMAB [Suspect]
     Active Substance: INFLIXIMAB
     Route: 065
  134. INFLIXIMAB [Suspect]
     Active Substance: INFLIXIMAB
     Route: 065
  135. INFLIXIMAB [Suspect]
     Active Substance: INFLIXIMAB
     Route: 065
     Dates: start: 20200407, end: 20230501
  136. INFLIXIMAB [Suspect]
     Active Substance: INFLIXIMAB
     Route: 065
  137. INFLIXIMAB [Suspect]
     Active Substance: INFLIXIMAB
     Route: 065
  138. INFLIXIMAB [Suspect]
     Active Substance: INFLIXIMAB
     Route: 065
  139. INFLIXIMAB [Suspect]
     Active Substance: INFLIXIMAB
     Route: 065
  140. INFLIXIMAB [Suspect]
     Active Substance: INFLIXIMAB
     Route: 065
  141. INFLIXIMAB [Suspect]
     Active Substance: INFLIXIMAB
     Route: 065
  142. INFLIXIMAB [Suspect]
     Active Substance: INFLIXIMAB
     Route: 065
  143. INFLIXIMAB [Suspect]
     Active Substance: INFLIXIMAB
     Route: 065
  144. INFLIXIMAB [Suspect]
     Active Substance: INFLIXIMAB
     Route: 065
  145. INFLIXIMAB [Suspect]
     Active Substance: INFLIXIMAB
     Route: 065
  146. INFLIXIMAB [Suspect]
     Active Substance: INFLIXIMAB
     Route: 065
  147. INFLIXIMAB [Suspect]
     Active Substance: INFLIXIMAB
     Route: 065
  148. INFLIXIMAB [Suspect]
     Active Substance: INFLIXIMAB
     Route: 065
  149. INFLIXIMAB [Suspect]
     Active Substance: INFLIXIMAB
     Route: 065
  150. INFLIXIMAB [Suspect]
     Active Substance: INFLIXIMAB
     Route: 065
  151. INFLIXIMAB [Suspect]
     Active Substance: INFLIXIMAB
     Indication: Colitis
     Route: 065
     Dates: start: 20200407, end: 20230501
  152. INFLIXIMAB [Suspect]
     Active Substance: INFLIXIMAB
     Indication: Colitis
     Route: 065
  153. INFLIXIMAB [Suspect]
     Active Substance: INFLIXIMAB
     Route: 065
  154. INFLIXIMAB [Suspect]
     Active Substance: INFLIXIMAB
     Route: 065
     Dates: start: 20200407, end: 20230501
  155. INFLIXIMAB [Suspect]
     Active Substance: INFLIXIMAB
     Route: 065
  156. INFLIXIMAB [Suspect]
     Active Substance: INFLIXIMAB
     Route: 065
     Dates: start: 20200407, end: 20230501
  157. INFLIXIMAB [Suspect]
     Active Substance: INFLIXIMAB
     Route: 065
     Dates: start: 20200407, end: 20230501
  158. INFLIXIMAB [Suspect]
     Active Substance: INFLIXIMAB
     Route: 065
     Dates: start: 20200407, end: 20230501
  159. INFLIXIMAB [Suspect]
     Active Substance: INFLIXIMAB
     Route: 065
     Dates: start: 20200407, end: 20230501
  160. INFLIXIMAB [Suspect]
     Active Substance: INFLIXIMAB
     Route: 065
  161. INFLIXIMAB [Suspect]
     Active Substance: INFLIXIMAB
     Route: 065
  162. INFLIXIMAB [Suspect]
     Active Substance: INFLIXIMAB
     Route: 065
     Dates: start: 20200407, end: 20230501
  163. INFLIXIMAB [Suspect]
     Active Substance: INFLIXIMAB
     Route: 065
  164. INFLIXIMAB [Suspect]
     Active Substance: INFLIXIMAB
     Route: 065
  165. INFLIXIMAB [Suspect]
     Active Substance: INFLIXIMAB
     Route: 065
  166. INFLIXIMAB [Suspect]
     Active Substance: INFLIXIMAB
     Route: 065
     Dates: start: 20200407, end: 20230501
  167. INFLIXIMAB [Suspect]
     Active Substance: INFLIXIMAB
     Route: 065
  168. INFLIXIMAB [Suspect]
     Active Substance: INFLIXIMAB
     Route: 065
  169. INFLIXIMAB [Suspect]
     Active Substance: INFLIXIMAB
     Route: 065
  170. INFLIXIMAB [Suspect]
     Active Substance: INFLIXIMAB
     Route: 065
  171. INFLIXIMAB [Suspect]
     Active Substance: INFLIXIMAB
     Route: 065
  172. INFLIXIMAB [Suspect]
     Active Substance: INFLIXIMAB
     Route: 065
  173. INFLIXIMAB [Suspect]
     Active Substance: INFLIXIMAB
     Route: 065
  174. INFLIXIMAB [Suspect]
     Active Substance: INFLIXIMAB
     Route: 065
  175. INFLIXIMAB [Suspect]
     Active Substance: INFLIXIMAB
     Route: 065
  176. INFLIXIMAB [Suspect]
     Active Substance: INFLIXIMAB
     Route: 065
  177. INFLIXIMAB [Suspect]
     Active Substance: INFLIXIMAB
     Route: 065
  178. INFLIXIMAB [Suspect]
     Active Substance: INFLIXIMAB
     Route: 065
  179. INFLIXIMAB [Suspect]
     Active Substance: INFLIXIMAB
     Route: 065
  180. INFLIXIMAB [Suspect]
     Active Substance: INFLIXIMAB
     Route: 065
  181. INFLIXIMAB [Suspect]
     Active Substance: INFLIXIMAB
     Route: 065
  182. INFLIXIMAB [Suspect]
     Active Substance: INFLIXIMAB
     Route: 065
  183. INFLIXIMAB [Suspect]
     Active Substance: INFLIXIMAB
     Route: 065
  184. INFLIXIMAB [Suspect]
     Active Substance: INFLIXIMAB
     Route: 065
  185. INFLIXIMAB [Suspect]
     Active Substance: INFLIXIMAB
     Route: 065
  186. INFLIXIMAB [Suspect]
     Active Substance: INFLIXIMAB
     Route: 065
  187. INFLIXIMAB [Suspect]
     Active Substance: INFLIXIMAB
     Route: 065
  188. INFLIXIMAB [Suspect]
     Active Substance: INFLIXIMAB
     Route: 065
  189. INFLIXIMAB [Suspect]
     Active Substance: INFLIXIMAB
     Route: 065
  190. INFLIXIMAB [Suspect]
     Active Substance: INFLIXIMAB
     Route: 065
  191. INFLIXIMAB [Suspect]
     Active Substance: INFLIXIMAB
     Route: 065
  192. INFLIXIMAB [Suspect]
     Active Substance: INFLIXIMAB
     Route: 065
  193. INFLIXIMAB [Suspect]
     Active Substance: INFLIXIMAB
     Route: 065
  194. INFLIXIMAB [Suspect]
     Active Substance: INFLIXIMAB
     Route: 065
  195. INFLIXIMAB [Suspect]
     Active Substance: INFLIXIMAB
     Route: 065
  196. INFLIXIMAB [Suspect]
     Active Substance: INFLIXIMAB
     Route: 065
  197. INFLIXIMAB [Suspect]
     Active Substance: INFLIXIMAB
     Route: 065
  198. INFLIXIMAB [Suspect]
     Active Substance: INFLIXIMAB
     Route: 065
  199. INFLIXIMAB [Suspect]
     Active Substance: INFLIXIMAB
     Route: 065
  200. INFLIXIMAB [Suspect]
     Active Substance: INFLIXIMAB
     Route: 065
  201. REMICADE [Suspect]
     Active Substance: INFLIXIMAB
     Indication: Product used for unknown indication
     Route: 042
  202. REMICADE [Suspect]
     Active Substance: INFLIXIMAB
     Route: 042
  203. REMICADE [Suspect]
     Active Substance: INFLIXIMAB
     Route: 042
  204. REMICADE [Suspect]
     Active Substance: INFLIXIMAB
     Route: 042
  205. REMICADE [Suspect]
     Active Substance: INFLIXIMAB
     Route: 042
  206. REMICADE [Suspect]
     Active Substance: INFLIXIMAB
     Route: 042
  207. REMICADE [Suspect]
     Active Substance: INFLIXIMAB
     Route: 042
  208. REMICADE [Suspect]
     Active Substance: INFLIXIMAB
     Route: 042
  209. REMICADE [Suspect]
     Active Substance: INFLIXIMAB
     Route: 042
  210. REMICADE [Suspect]
     Active Substance: INFLIXIMAB
     Route: 042
  211. REMICADE [Suspect]
     Active Substance: INFLIXIMAB
     Route: 042
  212. REMICADE [Suspect]
     Active Substance: INFLIXIMAB
     Route: 042
  213. REMICADE [Suspect]
     Active Substance: INFLIXIMAB
     Route: 042
  214. REMICADE [Suspect]
     Active Substance: INFLIXIMAB
     Route: 042
  215. REMICADE [Suspect]
     Active Substance: INFLIXIMAB
     Route: 042
  216. REMICADE [Suspect]
     Active Substance: INFLIXIMAB
     Route: 065
  217. REMICADE [Suspect]
     Active Substance: INFLIXIMAB
     Route: 065
  218. REMICADE [Suspect]
     Active Substance: INFLIXIMAB
     Route: 065
  219. REMICADE [Suspect]
     Active Substance: INFLIXIMAB
     Route: 065
  220. REMICADE [Suspect]
     Active Substance: INFLIXIMAB
     Route: 065
  221. REMICADE [Suspect]
     Active Substance: INFLIXIMAB
     Route: 065
  222. REMICADE [Suspect]
     Active Substance: INFLIXIMAB
     Route: 065
  223. REMICADE [Suspect]
     Active Substance: INFLIXIMAB
     Route: 065
  224. REMICADE [Suspect]
     Active Substance: INFLIXIMAB
     Route: 065
  225. REMICADE [Suspect]
     Active Substance: INFLIXIMAB
     Route: 065
  226. REMICADE [Suspect]
     Active Substance: INFLIXIMAB
     Route: 065
  227. REMICADE [Suspect]
     Active Substance: INFLIXIMAB
     Route: 065
  228. REMICADE [Suspect]
     Active Substance: INFLIXIMAB
     Route: 065
  229. REMICADE [Suspect]
     Active Substance: INFLIXIMAB
     Route: 065
  230. REMICADE [Suspect]
     Active Substance: INFLIXIMAB
     Route: 065
  231. REMICADE [Suspect]
     Active Substance: INFLIXIMAB
     Route: 065
  232. REMICADE [Suspect]
     Active Substance: INFLIXIMAB
     Route: 065
  233. REMICADE [Suspect]
     Active Substance: INFLIXIMAB
     Route: 065
  234. REMICADE [Suspect]
     Active Substance: INFLIXIMAB
     Route: 065
  235. REMICADE [Suspect]
     Active Substance: INFLIXIMAB
     Route: 065
  236. REMICADE [Suspect]
     Active Substance: INFLIXIMAB
     Route: 042
  237. REMICADE [Suspect]
     Active Substance: INFLIXIMAB
     Route: 042
  238. REMICADE [Suspect]
     Active Substance: INFLIXIMAB
     Route: 042
  239. REMICADE [Suspect]
     Active Substance: INFLIXIMAB
     Route: 042
  240. REMICADE [Suspect]
     Active Substance: INFLIXIMAB
     Route: 042
  241. REMICADE [Suspect]
     Active Substance: INFLIXIMAB
     Route: 042
  242. REMICADE [Suspect]
     Active Substance: INFLIXIMAB
     Route: 042
  243. REMICADE [Suspect]
     Active Substance: INFLIXIMAB
     Route: 042
  244. REMICADE [Suspect]
     Active Substance: INFLIXIMAB
     Route: 042
  245. REMICADE [Suspect]
     Active Substance: INFLIXIMAB
     Route: 042
  246. REMICADE [Suspect]
     Active Substance: INFLIXIMAB
     Route: 042
  247. REMICADE [Suspect]
     Active Substance: INFLIXIMAB
     Route: 042
  248. REMICADE [Suspect]
     Active Substance: INFLIXIMAB
     Route: 042
  249. REMICADE [Suspect]
     Active Substance: INFLIXIMAB
     Route: 065
  250. REMICADE [Suspect]
     Active Substance: INFLIXIMAB
     Route: 065
  251. METHOTREXATE [Suspect]
     Active Substance: METHOTREXATE
     Indication: Colitis
     Route: 065
  252. METHOTREXATE [Suspect]
     Active Substance: METHOTREXATE
     Indication: Colitis
     Route: 065
  253. METHOTREXATE [Suspect]
     Active Substance: METHOTREXATE
     Route: 065
  254. METHOTREXATE [Suspect]
     Active Substance: METHOTREXATE
     Route: 065
  255. METHOTREXATE [Suspect]
     Active Substance: METHOTREXATE
     Route: 065
  256. METHOTREXATE [Suspect]
     Active Substance: METHOTREXATE
     Route: 065
  257. METHOTREXATE [Suspect]
     Active Substance: METHOTREXATE
     Route: 065
  258. METHOTREXATE [Suspect]
     Active Substance: METHOTREXATE
     Route: 065
  259. METHOTREXATE [Suspect]
     Active Substance: METHOTREXATE
     Route: 065
  260. METHOTREXATE [Suspect]
     Active Substance: METHOTREXATE
     Route: 065
  261. METHOTREXATE [Suspect]
     Active Substance: METHOTREXATE
     Route: 065
  262. METHOTREXATE [Suspect]
     Active Substance: METHOTREXATE
     Route: 065
  263. METHOTREXATE [Suspect]
     Active Substance: METHOTREXATE
     Route: 065
  264. METHOTREXATE [Suspect]
     Active Substance: METHOTREXATE
     Route: 065
  265. METHOTREXATE [Suspect]
     Active Substance: METHOTREXATE
     Route: 065
  266. METHOTREXATE [Suspect]
     Active Substance: METHOTREXATE
     Route: 065
  267. METHOTREXATE [Suspect]
     Active Substance: METHOTREXATE
     Route: 065
  268. METHOTREXATE [Suspect]
     Active Substance: METHOTREXATE
     Route: 065
  269. METHOTREXATE [Suspect]
     Active Substance: METHOTREXATE
     Route: 065
  270. METHOTREXATE [Suspect]
     Active Substance: METHOTREXATE
     Route: 065
  271. METHOTREXATE [Suspect]
     Active Substance: METHOTREXATE
     Route: 065
  272. METHOTREXATE [Suspect]
     Active Substance: METHOTREXATE
     Route: 065
  273. METHOTREXATE [Suspect]
     Active Substance: METHOTREXATE
     Route: 065
  274. METHOTREXATE [Suspect]
     Active Substance: METHOTREXATE
     Route: 065
  275. METHOTREXATE [Suspect]
     Active Substance: METHOTREXATE
     Route: 065
  276. METHOTREXATE [Suspect]
     Active Substance: METHOTREXATE
     Route: 065
  277. METHOTREXATE [Suspect]
     Active Substance: METHOTREXATE
     Route: 065
  278. METHOTREXATE [Suspect]
     Active Substance: METHOTREXATE
     Route: 065
  279. METHOTREXATE [Suspect]
     Active Substance: METHOTREXATE
     Route: 065
  280. METHOTREXATE [Suspect]
     Active Substance: METHOTREXATE
     Route: 065
  281. METHOTREXATE [Suspect]
     Active Substance: METHOTREXATE
     Route: 065
  282. METHOTREXATE [Suspect]
     Active Substance: METHOTREXATE
     Route: 065
  283. METHOTREXATE [Suspect]
     Active Substance: METHOTREXATE
     Route: 065
  284. METHOTREXATE [Suspect]
     Active Substance: METHOTREXATE
     Route: 065
  285. METHOTREXATE [Suspect]
     Active Substance: METHOTREXATE
     Route: 065
  286. METHOTREXATE [Suspect]
     Active Substance: METHOTREXATE
     Route: 065
  287. METHOTREXATE [Suspect]
     Active Substance: METHOTREXATE
     Route: 065
  288. METHOTREXATE [Suspect]
     Active Substance: METHOTREXATE
     Route: 065
  289. METHOTREXATE [Suspect]
     Active Substance: METHOTREXATE
     Route: 065
  290. METHOTREXATE [Suspect]
     Active Substance: METHOTREXATE
     Route: 065
  291. METHOTREXATE [Suspect]
     Active Substance: METHOTREXATE
     Route: 065
  292. METHOTREXATE [Suspect]
     Active Substance: METHOTREXATE
     Route: 065
  293. METHOTREXATE [Suspect]
     Active Substance: METHOTREXATE
     Route: 065
  294. METHOTREXATE [Suspect]
     Active Substance: METHOTREXATE
     Route: 065
  295. METHOTREXATE [Suspect]
     Active Substance: METHOTREXATE
     Route: 065
  296. METHOTREXATE [Suspect]
     Active Substance: METHOTREXATE
     Route: 065
  297. METHOTREXATE [Suspect]
     Active Substance: METHOTREXATE
     Route: 065
  298. METHOTREXATE [Suspect]
     Active Substance: METHOTREXATE
     Route: 065
  299. METHOTREXATE [Suspect]
     Active Substance: METHOTREXATE
     Route: 065
  300. METHOTREXATE [Suspect]
     Active Substance: METHOTREXATE
     Route: 065
  301. ADALIMUMAB [Suspect]
     Active Substance: ADALIMUMAB
     Indication: Colitis
     Route: 065
  302. ADALIMUMAB [Suspect]
     Active Substance: ADALIMUMAB
     Route: 065
  303. ADALIMUMAB [Suspect]
     Active Substance: ADALIMUMAB
     Route: 065
  304. ADALIMUMAB [Suspect]
     Active Substance: ADALIMUMAB
     Route: 065
  305. ADALIMUMAB [Suspect]
     Active Substance: ADALIMUMAB
     Route: 065
  306. ADALIMUMAB [Suspect]
     Active Substance: ADALIMUMAB
     Route: 065
  307. ADALIMUMAB [Suspect]
     Active Substance: ADALIMUMAB
     Route: 065
  308. ADALIMUMAB [Suspect]
     Active Substance: ADALIMUMAB
     Route: 065
  309. ADALIMUMAB [Suspect]
     Active Substance: ADALIMUMAB
     Route: 065
  310. ADALIMUMAB [Suspect]
     Active Substance: ADALIMUMAB
     Route: 065
  311. ADALIMUMAB [Suspect]
     Active Substance: ADALIMUMAB
     Route: 065
  312. ADALIMUMAB [Suspect]
     Active Substance: ADALIMUMAB
     Route: 065
  313. ADALIMUMAB [Suspect]
     Active Substance: ADALIMUMAB
     Route: 065
  314. REMICADE [Suspect]
     Active Substance: INFLIXIMAB
     Indication: Product used for unknown indication
     Route: 042
  315. REMICADE [Suspect]
     Active Substance: INFLIXIMAB
     Indication: Colitis
     Route: 042
  316. REMICADE [Suspect]
     Active Substance: INFLIXIMAB
     Indication: Colitis
     Route: 042
  317. REMICADE [Suspect]
     Active Substance: INFLIXIMAB
     Route: 042
  318. REMICADE [Suspect]
     Active Substance: INFLIXIMAB
     Route: 042
  319. REMICADE [Suspect]
     Active Substance: INFLIXIMAB
     Route: 042
  320. REMICADE [Suspect]
     Active Substance: INFLIXIMAB
     Route: 042
  321. REMICADE [Suspect]
     Active Substance: INFLIXIMAB
     Route: 042
  322. REMICADE [Suspect]
     Active Substance: INFLIXIMAB
     Route: 042
  323. REMICADE [Suspect]
     Active Substance: INFLIXIMAB
     Route: 042
  324. REMICADE [Suspect]
     Active Substance: INFLIXIMAB
     Route: 042
  325. REMICADE [Suspect]
     Active Substance: INFLIXIMAB
     Route: 042
  326. REMICADE [Suspect]
     Active Substance: INFLIXIMAB
     Route: 042
  327. REMICADE [Suspect]
     Active Substance: INFLIXIMAB
     Route: 042
  328. REMICADE [Suspect]
     Active Substance: INFLIXIMAB
     Route: 042
  329. REMICADE [Suspect]
     Active Substance: INFLIXIMAB
     Route: 042
  330. REMICADE [Suspect]
     Active Substance: INFLIXIMAB
     Route: 042
  331. REMICADE [Suspect]
     Active Substance: INFLIXIMAB
     Route: 065
  332. REMICADE [Suspect]
     Active Substance: INFLIXIMAB
     Route: 065
  333. REMICADE [Suspect]
     Active Substance: INFLIXIMAB
     Route: 065
  334. REMICADE [Suspect]
     Active Substance: INFLIXIMAB
     Route: 042
  335. REMICADE [Suspect]
     Active Substance: INFLIXIMAB
     Route: 042
  336. REMICADE [Suspect]
     Active Substance: INFLIXIMAB
     Route: 042
  337. REMICADE [Suspect]
     Active Substance: INFLIXIMAB
     Route: 042
  338. REMICADE [Suspect]
     Active Substance: INFLIXIMAB
     Route: 042
  339. REMICADE [Suspect]
     Active Substance: INFLIXIMAB
     Route: 042
  340. REMICADE [Suspect]
     Active Substance: INFLIXIMAB
     Route: 042
  341. REMICADE [Suspect]
     Active Substance: INFLIXIMAB
     Route: 042
  342. REMICADE [Suspect]
     Active Substance: INFLIXIMAB
     Route: 042
  343. REMICADE [Suspect]
     Active Substance: INFLIXIMAB
     Route: 042
     Dates: start: 20200407, end: 20230501
  344. REMICADE [Suspect]
     Active Substance: INFLIXIMAB
     Route: 042
  345. REMICADE [Suspect]
     Active Substance: INFLIXIMAB
     Route: 042
  346. REMICADE [Suspect]
     Active Substance: INFLIXIMAB
     Route: 042
  347. REMICADE [Suspect]
     Active Substance: INFLIXIMAB
     Route: 042
  348. REMICADE [Suspect]
     Active Substance: INFLIXIMAB
     Route: 042
  349. REMICADE [Suspect]
     Active Substance: INFLIXIMAB
     Route: 042
  350. REMICADE [Suspect]
     Active Substance: INFLIXIMAB
     Route: 042
  351. REMICADE [Suspect]
     Active Substance: INFLIXIMAB
     Route: 042
  352. REMICADE [Suspect]
     Active Substance: INFLIXIMAB
     Route: 042
  353. REMICADE [Suspect]
     Active Substance: INFLIXIMAB
     Route: 042
  354. REMICADE [Suspect]
     Active Substance: INFLIXIMAB
     Route: 042
  355. REMICADE [Suspect]
     Active Substance: INFLIXIMAB
     Route: 042
  356. REMICADE [Suspect]
     Active Substance: INFLIXIMAB
     Route: 042
  357. REMICADE [Suspect]
     Active Substance: INFLIXIMAB
     Route: 042
  358. REMICADE [Suspect]
     Active Substance: INFLIXIMAB
     Route: 042
  359. REMICADE [Suspect]
     Active Substance: INFLIXIMAB
     Route: 042
  360. REMICADE [Suspect]
     Active Substance: INFLIXIMAB
     Route: 042
  361. REMICADE [Suspect]
     Active Substance: INFLIXIMAB
     Route: 042
  362. REMICADE [Suspect]
     Active Substance: INFLIXIMAB
     Route: 042
  363. REMICADE [Suspect]
     Active Substance: INFLIXIMAB
     Route: 042
  364. INFLIXIMAB [Suspect]
     Active Substance: INFLIXIMAB
     Indication: Colitis
     Route: 065
  365. INFLIXIMAB [Suspect]
     Active Substance: INFLIXIMAB
     Indication: Colitis
     Route: 065
  366. INFLIXIMAB [Suspect]
     Active Substance: INFLIXIMAB
     Route: 065
  367. INFLIXIMAB [Suspect]
     Active Substance: INFLIXIMAB
     Route: 065
  368. INFLIXIMAB [Suspect]
     Active Substance: INFLIXIMAB
     Route: 065
  369. INFLIXIMAB [Suspect]
     Active Substance: INFLIXIMAB
     Route: 065
  370. INFLIXIMAB [Suspect]
     Active Substance: INFLIXIMAB
     Route: 065
  371. INFLIXIMAB [Suspect]
     Active Substance: INFLIXIMAB
     Route: 065
  372. INFLIXIMAB [Suspect]
     Active Substance: INFLIXIMAB
     Route: 065
  373. INFLIXIMAB [Suspect]
     Active Substance: INFLIXIMAB
     Route: 065
  374. INFLIXIMAB [Suspect]
     Active Substance: INFLIXIMAB
     Route: 065
  375. INFLIXIMAB [Suspect]
     Active Substance: INFLIXIMAB
     Route: 065
  376. INFLIXIMAB [Suspect]
     Active Substance: INFLIXIMAB
     Route: 065
  377. INFLIXIMAB [Suspect]
     Active Substance: INFLIXIMAB
     Route: 065
  378. INFLIXIMAB [Suspect]
     Active Substance: INFLIXIMAB
     Route: 065
  379. INFLIXIMAB [Suspect]
     Active Substance: INFLIXIMAB
     Route: 065
  380. INFLIXIMAB [Suspect]
     Active Substance: INFLIXIMAB
     Route: 065
  381. INFLIXIMAB [Suspect]
     Active Substance: INFLIXIMAB
     Route: 065
  382. INFLIXIMAB [Suspect]
     Active Substance: INFLIXIMAB
     Route: 065
  383. INFLIXIMAB [Suspect]
     Active Substance: INFLIXIMAB
     Route: 065
  384. INFLIXIMAB [Suspect]
     Active Substance: INFLIXIMAB
     Route: 065
  385. INFLIXIMAB [Suspect]
     Active Substance: INFLIXIMAB
     Route: 065
  386. INFLIXIMAB [Suspect]
     Active Substance: INFLIXIMAB
     Route: 065
  387. INFLIXIMAB [Suspect]
     Active Substance: INFLIXIMAB
     Route: 065
  388. INFLIXIMAB [Suspect]
     Active Substance: INFLIXIMAB
     Route: 065
  389. INFLIXIMAB [Suspect]
     Active Substance: INFLIXIMAB
     Route: 065
  390. INFLIXIMAB [Suspect]
     Active Substance: INFLIXIMAB
     Route: 065
  391. INFLIXIMAB [Suspect]
     Active Substance: INFLIXIMAB
     Route: 065
  392. INFLIXIMAB [Suspect]
     Active Substance: INFLIXIMAB
     Route: 065
  393. INFLIXIMAB [Suspect]
     Active Substance: INFLIXIMAB
     Route: 065
  394. INFLIXIMAB [Suspect]
     Active Substance: INFLIXIMAB
     Route: 065
  395. INFLIXIMAB [Suspect]
     Active Substance: INFLIXIMAB
     Route: 065
  396. INFLIXIMAB [Suspect]
     Active Substance: INFLIXIMAB
     Route: 065
  397. INFLIXIMAB [Suspect]
     Active Substance: INFLIXIMAB
     Route: 065
  398. INFLIXIMAB [Suspect]
     Active Substance: INFLIXIMAB
     Route: 065
  399. INFLIXIMAB [Suspect]
     Active Substance: INFLIXIMAB
     Route: 065
  400. INFLIXIMAB [Suspect]
     Active Substance: INFLIXIMAB
     Route: 065
  401. INFLIXIMAB [Suspect]
     Active Substance: INFLIXIMAB
     Route: 065
  402. INFLIXIMAB [Suspect]
     Active Substance: INFLIXIMAB
     Route: 065
  403. INFLIXIMAB [Suspect]
     Active Substance: INFLIXIMAB
     Route: 065
  404. INFLIXIMAB [Suspect]
     Active Substance: INFLIXIMAB
     Route: 065
  405. INFLIXIMAB [Suspect]
     Active Substance: INFLIXIMAB
     Route: 065
  406. INFLIXIMAB [Suspect]
     Active Substance: INFLIXIMAB
     Route: 065
  407. INFLIXIMAB [Suspect]
     Active Substance: INFLIXIMAB
     Route: 065
  408. INFLIXIMAB [Suspect]
     Active Substance: INFLIXIMAB
     Route: 065
  409. INFLIXIMAB [Suspect]
     Active Substance: INFLIXIMAB
     Route: 065
  410. INFLIXIMAB [Suspect]
     Active Substance: INFLIXIMAB
     Route: 065
  411. INFLIXIMAB [Suspect]
     Active Substance: INFLIXIMAB
     Route: 065
  412. INFLIXIMAB [Suspect]
     Active Substance: INFLIXIMAB
     Route: 065
  413. INFLIXIMAB [Suspect]
     Active Substance: INFLIXIMAB
     Route: 065
  414. INFLIXIMAB [Suspect]
     Active Substance: INFLIXIMAB
     Indication: Colitis
     Route: 065
  415. INFLIXIMAB [Suspect]
     Active Substance: INFLIXIMAB
     Route: 065
  416. INFLIXIMAB [Suspect]
     Active Substance: INFLIXIMAB
     Route: 065
  417. INFLIXIMAB [Suspect]
     Active Substance: INFLIXIMAB
     Route: 065
  418. INFLIXIMAB [Suspect]
     Active Substance: INFLIXIMAB
     Route: 065
  419. INFLIXIMAB [Suspect]
     Active Substance: INFLIXIMAB
     Route: 065
  420. INFLIXIMAB [Suspect]
     Active Substance: INFLIXIMAB
     Route: 065
  421. INFLIXIMAB [Suspect]
     Active Substance: INFLIXIMAB
     Route: 065
  422. INFLIXIMAB [Suspect]
     Active Substance: INFLIXIMAB
     Route: 065
  423. INFLIXIMAB [Suspect]
     Active Substance: INFLIXIMAB
     Route: 065
  424. INFLIXIMAB [Suspect]
     Active Substance: INFLIXIMAB
     Route: 065
  425. INFLIXIMAB [Suspect]
     Active Substance: INFLIXIMAB
     Route: 065
  426. INFLIXIMAB [Suspect]
     Active Substance: INFLIXIMAB
     Route: 065
  427. INFLIXIMAB [Suspect]
     Active Substance: INFLIXIMAB
     Route: 065
  428. INFLIXIMAB [Suspect]
     Active Substance: INFLIXIMAB
     Route: 065
  429. INFLIXIMAB [Suspect]
     Active Substance: INFLIXIMAB
     Route: 065
  430. INFLIXIMAB [Suspect]
     Active Substance: INFLIXIMAB
     Route: 065
  431. INFLIXIMAB [Suspect]
     Active Substance: INFLIXIMAB
     Route: 065
  432. INFLIXIMAB [Suspect]
     Active Substance: INFLIXIMAB
     Route: 065
  433. INFLIXIMAB [Suspect]
     Active Substance: INFLIXIMAB
     Route: 065
  434. INFLIXIMAB [Suspect]
     Active Substance: INFLIXIMAB
     Route: 065
  435. INFLIXIMAB [Suspect]
     Active Substance: INFLIXIMAB
     Route: 065
  436. INFLIXIMAB [Suspect]
     Active Substance: INFLIXIMAB
     Route: 065
  437. INFLIXIMAB [Suspect]
     Active Substance: INFLIXIMAB
     Route: 065
  438. INFLIXIMAB [Suspect]
     Active Substance: INFLIXIMAB
     Route: 065
  439. INFLIXIMAB [Suspect]
     Active Substance: INFLIXIMAB
     Route: 065
  440. INFLIXIMAB [Suspect]
     Active Substance: INFLIXIMAB
     Route: 065
  441. INFLIXIMAB [Suspect]
     Active Substance: INFLIXIMAB
     Route: 065
  442. INFLIXIMAB [Suspect]
     Active Substance: INFLIXIMAB
     Route: 065
  443. INFLIXIMAB [Suspect]
     Active Substance: INFLIXIMAB
     Route: 065
  444. INFLIXIMAB [Suspect]
     Active Substance: INFLIXIMAB
     Route: 065
  445. INFLIXIMAB [Suspect]
     Active Substance: INFLIXIMAB
     Route: 065
  446. INFLIXIMAB [Suspect]
     Active Substance: INFLIXIMAB
     Route: 065
  447. INFLIXIMAB [Suspect]
     Active Substance: INFLIXIMAB
     Route: 065
  448. INFLIXIMAB [Suspect]
     Active Substance: INFLIXIMAB
     Indication: Colitis
     Route: 065
  449. INFLIXIMAB [Suspect]
     Active Substance: INFLIXIMAB
     Indication: Colitis
     Route: 065
  450. INFLIXIMAB [Suspect]
     Active Substance: INFLIXIMAB
     Route: 065
  451. INFLIXIMAB [Suspect]
     Active Substance: INFLIXIMAB
     Route: 065
  452. INFLIXIMAB [Suspect]
     Active Substance: INFLIXIMAB
     Route: 065
  453. METHOTREXATE [Concomitant]
     Active Substance: METHOTREXATE
     Indication: Colitis
     Route: 065
  454. METHOTREXATE [Concomitant]
     Active Substance: METHOTREXATE
     Indication: Colitis
     Route: 065
  455. METHOTREXATE [Concomitant]
     Active Substance: METHOTREXATE
     Indication: Product used for unknown indication
     Route: 065
  456. METHOTREXATE [Concomitant]
     Active Substance: METHOTREXATE
     Route: 065
  457. METHOTREXATE [Concomitant]
     Active Substance: METHOTREXATE
     Route: 065
  458. METHOTREXATE [Concomitant]
     Active Substance: METHOTREXATE
     Route: 065
  459. METHOTREXATE [Concomitant]
     Active Substance: METHOTREXATE
     Route: 065
  460. METHOTREXATE [Concomitant]
     Active Substance: METHOTREXATE
     Route: 065
  461. METHOTREXATE [Concomitant]
     Active Substance: METHOTREXATE
     Route: 065
  462. METHOTREXATE [Concomitant]
     Active Substance: METHOTREXATE
     Route: 065
  463. METHOTREXATE [Concomitant]
     Active Substance: METHOTREXATE
     Route: 065
  464. METHOTREXATE [Concomitant]
     Active Substance: METHOTREXATE
     Route: 065
  465. METHOTREXATE [Concomitant]
     Active Substance: METHOTREXATE
     Route: 065
  466. METHOTREXATE [Concomitant]
     Active Substance: METHOTREXATE
     Route: 065
  467. METHOTREXATE [Concomitant]
     Active Substance: METHOTREXATE
     Route: 065
  468. METHOTREXATE [Concomitant]
     Active Substance: METHOTREXATE
     Route: 065
  469. METHOTREXATE [Concomitant]
     Active Substance: METHOTREXATE
     Route: 065
  470. METHOTREXATE [Concomitant]
     Active Substance: METHOTREXATE
     Route: 065
  471. METHOTREXATE [Concomitant]
     Active Substance: METHOTREXATE
     Route: 065
  472. METHOTREXATE [Concomitant]
     Active Substance: METHOTREXATE
     Route: 065
  473. METHOTREXATE [Concomitant]
     Active Substance: METHOTREXATE
     Route: 065
  474. METHOTREXATE [Concomitant]
     Active Substance: METHOTREXATE
     Route: 065
  475. METHOTREXATE [Concomitant]
     Active Substance: METHOTREXATE
     Route: 065
  476. METHOTREXATE [Concomitant]
     Active Substance: METHOTREXATE
     Route: 065
  477. METHOTREXATE [Concomitant]
     Active Substance: METHOTREXATE
     Route: 065
  478. METHOTREXATE [Concomitant]
     Active Substance: METHOTREXATE
     Route: 065
  479. METHOTREXATE [Concomitant]
     Active Substance: METHOTREXATE
     Route: 065
  480. METHOTREXATE [Concomitant]
     Active Substance: METHOTREXATE
     Route: 065
  481. METHOTREXATE [Concomitant]
     Active Substance: METHOTREXATE
     Route: 065
  482. METHOTREXATE [Concomitant]
     Active Substance: METHOTREXATE
     Route: 065
  483. METHOTREXATE [Concomitant]
     Active Substance: METHOTREXATE
     Route: 065
  484. METHOTREXATE [Concomitant]
     Active Substance: METHOTREXATE
     Route: 065
  485. METHOTREXATE [Concomitant]
     Active Substance: METHOTREXATE
     Route: 065
  486. METHOTREXATE [Concomitant]
     Active Substance: METHOTREXATE
     Route: 065
  487. METHOTREXATE [Concomitant]
     Active Substance: METHOTREXATE
     Route: 065
  488. METHOTREXATE [Concomitant]
     Active Substance: METHOTREXATE
     Route: 065
  489. METHOTREXATE [Concomitant]
     Active Substance: METHOTREXATE
     Route: 065
  490. METHOTREXATE [Concomitant]
     Active Substance: METHOTREXATE
     Route: 065

REACTIONS (8)
  - Arthritis bacterial [Recovering/Resolving]
  - Streptococcal sepsis [Recovering/Resolving]
  - Sepsis [Recovering/Resolving]
  - Streptococcal infection [Recovering/Resolving]
  - Overdose [Unknown]
  - Arthralgia [Recovering/Resolving]
  - Product use in unapproved indication [Unknown]
  - Off label use [Unknown]

NARRATIVE: CASE EVENT DATE: 20230501
